FAERS Safety Report 16479085 (Version 1)
Quarter: 2019Q2

REPORT INFORMATION
  Report Type: Spontaneous
  Country: US (occurrence: US)
  Receive Date: 20190626
  Receipt Date: 20190626
  Transmission Date: 20190711
  Serious: Yes (Death, Hospitalization, Other)
  Sender: FDA-Public Use
  Company Number: US-SAOL THERAPEUTICS-2018SAO00948

PATIENT
  Age: 9 Year
  Sex: Male
  Weight: 29.48 kg

DRUGS (14)
  1. ALBUTEROL. [Concomitant]
     Active Substance: ALBUTEROL
  2. DIAZEPAM. [Concomitant]
     Active Substance: DIAZEPAM
  3. BACLOFEN. [Concomitant]
     Active Substance: BACLOFEN
  4. DIPHENHYDRAMINE. [Concomitant]
     Active Substance: DIPHENHYDRAMINE
  5. PREDNISOLONE. [Concomitant]
     Active Substance: PREDNISOLONE
  6. LIORESAL [Suspect]
     Active Substance: BACLOFEN
     Dosage: 96.1 MICROGRAM, \DAY
     Route: 037
     Dates: start: 20180302
  7. DUOCAL [Concomitant]
  8. FLOVENT HFA [Concomitant]
     Active Substance: FLUTICASONE PROPIONATE
  9. LEVETIRACETAM. [Concomitant]
     Active Substance: LEVETIRACETAM
  10. MULTIVITAMINS WITH IRON [Concomitant]
     Active Substance: IRON\VITAMINS
  11. LIORESAL [Suspect]
     Active Substance: BACLOFEN
     Indication: MUSCLE SPASTICITY
     Dosage: 148.2 MICROGRAM, \DAY
     Route: 037
     Dates: start: 20160829, end: 20180301
  12. LIORESAL [Suspect]
     Active Substance: BACLOFEN
     Dosage: MINIMAL RATE
     Dates: start: 20180301, end: 20180302
  13. ACETAMINOPHEN. [Concomitant]
     Active Substance: ACETAMINOPHEN
  14. POLYETHYLENE GLYCOL 3350. [Concomitant]
     Active Substance: POLYETHYLENE GLYCOL 3350

REACTIONS (6)
  - Renal failure [Fatal]
  - Unresponsive to stimuli [Unknown]
  - Overdose [Unknown]
  - Hypotonia [Unknown]
  - Dehydration [Unknown]
  - Acute respiratory failure [Unknown]

NARRATIVE: CASE EVENT DATE: 20180301
